FAERS Safety Report 9244525 (Version 1)
Quarter: 2013Q2

REPORT INFORMATION
  Report Type: Other
  Country: GB (occurrence: GB)
  Receive Date: 20130422
  Receipt Date: 20130422
  Transmission Date: 20140414
  Serious: Yes (Other)
  Sender: FDA-Public Use
  Company Number: GB-SUN PHARMACEUTICAL INDUSTRIES LTD-2013SUN00478

PATIENT
  Age: 39 Year
  Sex: Female

DRUGS (3)
  1. BACLOFEN [Suspect]
     Indication: MUSCLE SPASTICITY
     Dosage: 40 MG, UNK
     Route: 065
     Dates: start: 200809
  2. GILENYA [Suspect]
     Indication: MULTIPLE SCLEROSIS RELAPSE
     Dosage: 0.5 MG, OD
     Route: 048
     Dates: start: 20121017
  3. PREGABALIN [Concomitant]
     Indication: NEURALGIA
     Dosage: 300 MG, UNK
     Route: 048
     Dates: start: 200908

REACTIONS (4)
  - Lower respiratory tract infection [Recovered/Resolved]
  - Blood alkaline phosphatase increased [Recovering/Resolving]
  - Liver function test abnormal [Recovered/Resolved]
  - Headache [Recovering/Resolving]
